FAERS Safety Report 24678579 (Version 1)
Quarter: 2024Q4

REPORT INFORMATION
  Report Type: Spontaneous
  Country: CA (occurrence: CA)
  Receive Date: 20241129
  Receipt Date: 20241129
  Transmission Date: 20250115
  Serious: Yes (Other)
  Sender: Unknown Manufacturer
  Company Number: CA-862174955-ML2024-06190

PATIENT
  Age: 62 Year
  Sex: Male

DRUGS (4)
  1. TOBRAMYCIN [Suspect]
     Active Substance: TOBRAMYCIN\TOBRAMYCIN SULFATE
     Indication: Peritonitis
     Dosage: DOSE OF 0.6 MG/KG ROUNDED TO 40 MG WAS CHOSEN TO BE ADMINISTERED DAILY OVER A 6-H DWELL
     Route: 033
  2. CEFTRIAXONE [Concomitant]
     Active Substance: CEFTRIAXONE
     Indication: Peritonitis
     Route: 042
  3. CEFTAZIDIME [Concomitant]
     Active Substance: CEFTAZIDIME
     Indication: Peritonitis
     Route: 033
  4. NYSTATIN [Concomitant]
     Active Substance: NYSTATIN
     Indication: Peritonitis
     Route: 048

REACTIONS (4)
  - Neurotoxicity [Unknown]
  - Ototoxicity [Unknown]
  - Gait disturbance [Unknown]
  - Drug level above therapeutic [Unknown]
